FAERS Safety Report 15335932 (Version 1)
Quarter: 2018Q3

REPORT INFORMATION
  Report Type: Spontaneous
  Country: FR (occurrence: FR)
  Receive Date: 20180830
  Receipt Date: 20180830
  Transmission Date: 20181010
  Serious: Yes (Other)
  Sender: FDA-Public Use
  Company Number: PHHY2018FR079997

PATIENT
  Age: 48 Year
  Sex: Female

DRUGS (1)
  1. FTY [Suspect]
     Active Substance: FINGOLIMOD HYDROCHLORIDE
     Indication: MULTIPLE SCLEROSIS
     Dosage: UNK
     Route: 065

REACTIONS (8)
  - Hemiparesis [Recovered/Resolved]
  - Romberg test positive [Recovered/Resolved]
  - Lymphocyte count decreased [Unknown]
  - Nystagmus [Recovered/Resolved]
  - Multiple sclerosis relapse [Recovered/Resolved]
  - Bladder dysfunction [Recovered/Resolved]
  - Therapeutic response decreased [Unknown]
  - Ataxia [Recovered/Resolved]
